FAERS Safety Report 9420035 (Version 1)
Quarter: 2013Q3

REPORT INFORMATION
  Report Type: Report from Study
  Country: DE (occurrence: DE)
  Receive Date: 20130725
  Receipt Date: 20130725
  Transmission Date: 20140515
  Serious: Yes (Death, Other)
  Sender: FDA-Public Use
  Company Number: DE-ACTELION-A-CH2013-86144

PATIENT
  Age: 51 Year
  Sex: Male

DRUGS (10)
  1. TRACLEER [Suspect]
     Indication: SKIN ULCER
     Dosage: 125 MG, BID
     Route: 048
     Dates: start: 20090913, end: 20130314
  2. TRACLEER [Suspect]
     Dosage: 62.5 MG, BID
     Route: 048
     Dates: start: 20090813, end: 20090912
  3. DECORTIN [Concomitant]
     Dosage: 5 MG, UNK
  4. CELLCEPT [Concomitant]
     Indication: SYSTEMIC SCLEROSIS
     Dosage: 3000 MG, UNK
  5. MARCUMAR [Concomitant]
  6. MST [Concomitant]
     Dosage: 10 UNK, UNK
  7. ESIDRIX [Concomitant]
     Dosage: 25 UNK, UNK
  8. PANTOZOL [Concomitant]
     Dosage: 40 UNK, UNK
  9. CARVEDILOL [Concomitant]
     Dosage: 6.25 UNK, UNK
  10. RAMIPRIL [Concomitant]
     Dosage: 2.5 UNK, UNK

REACTIONS (6)
  - Death [Fatal]
  - Bronchitis [Unknown]
  - Cardiac disorder [Unknown]
  - Pleural effusion [Unknown]
  - Ascites [Unknown]
  - Gamma-glutamyltransferase increased [Unknown]
